FAERS Safety Report 8246854-2 (Version None)
Quarter: 2012Q1

REPORT INFORMATION
  Report Type: 
  Country: None (occurrence: None)
  Receive Date: 20120330
  Receipt Date: 20120316
  Transmission Date: 20120608
  Serious: Yes (Other)
  Sender: FDA-Public Use
  Company Number: AU-RANBAXY-2012RR-53710

PATIENT
  Age: 18 Year
  Sex: Male

DRUGS (1)
  1. PROZAC [Suspect]
     Dosage: 10 MG/DAY
     Route: 065

REACTIONS (3)
  - AKATHISIA [None]
  - HOMICIDE [None]
  - SUICIDAL BEHAVIOUR [None]
